FAERS Safety Report 20839781 (Version 1)
Quarter: 2022Q2

REPORT INFORMATION
  Report Type: Spontaneous
  Country: US (occurrence: None)
  Receive Date: 20220517
  Receipt Date: 20220517
  Transmission Date: 20220720
  Serious: Yes (Other)
  Sender: FDA-Public Use
  Company Number: 2022A179977

PATIENT
  Sex: Female
  Weight: 61.2 kg

DRUGS (2)
  1. FASENRA [Suspect]
     Active Substance: BENRALIZUMAB
     Indication: Asthma
     Route: 058
  2. BUDESONIDE\FORMOTEROL\GLYCOPYRRONIUM [Suspect]
     Active Substance: BUDESONIDE\FORMOTEROL\GLYCOPYRRONIUM
     Indication: Asthma
     Route: 055

REACTIONS (11)
  - Angioedema [Unknown]
  - Asthma [Unknown]
  - Wheezing [Unknown]
  - Mycotic allergy [Unknown]
  - Weight fluctuation [Unknown]
  - Pain [Not Recovered/Not Resolved]
  - Aphonia [Unknown]
  - Body height abnormal [Unknown]
  - Drug hypersensitivity [Unknown]
  - Hypersensitivity [Unknown]
  - Product use in unapproved indication [Unknown]
